FAERS Safety Report 25495932 (Version 4)
Quarter: 2025Q4

REPORT INFORMATION
  Report Type: Spontaneous
  Country: CA (occurrence: CA)
  Receive Date: 20250630
  Receipt Date: 20251205
  Transmission Date: 20260118
  Serious: Yes (Death, Life-Threatening, Hospitalization, Disabling, Other)
  Sender: PFIZER
  Company Number: CA-Orion Corporation ORION PHARMA-TREX2025-0104

PATIENT
  Age: 43 Year
  Sex: Female
  Weight: 97 kg

DRUGS (116)
  1. METHOTREXATE SODIUM [Suspect]
     Active Substance: METHOTREXATE SODIUM
     Indication: Rheumatoid arthritis
     Dosage: UNK UNK, DAILY
  2. METHOTREXATE SODIUM [Suspect]
     Active Substance: METHOTREXATE SODIUM
     Dosage: 1 MG
  3. METHOTREXATE SODIUM [Suspect]
     Active Substance: METHOTREXATE SODIUM
     Dosage: 20 MG
  4. METHOTREXATE SODIUM [Suspect]
     Active Substance: METHOTREXATE SODIUM
     Dosage: UNK UNK, WEEKLY
  5. METHOTREXATE SODIUM [Suspect]
     Active Substance: METHOTREXATE SODIUM
     Dosage: 500 MG
  6. METHOTREXATE SODIUM [Suspect]
     Active Substance: METHOTREXATE SODIUM
     Indication: Rheumatoid arthritis
     Dosage: 25 MG
  7. METHOTREXATE SODIUM [Suspect]
     Active Substance: METHOTREXATE SODIUM
     Dosage: UNK
  8. METHOTREXATE SODIUM [Suspect]
     Active Substance: METHOTREXATE SODIUM
     Dosage: 1 IN 1 DAY (DRUG NO LONGER ADMINISTERED)
  9. METHOTREXATE SODIUM [Suspect]
     Active Substance: METHOTREXATE SODIUM
     Dosage: UNK (DRUG NO LONGER ADMINISTERED)
  10. METHOTREXATE SODIUM [Suspect]
     Active Substance: METHOTREXATE SODIUM
     Dosage: 1 IN 24 HOUR (DRUG NO LONGER ADMINISTERED)
  11. METHOTREXATE SODIUM [Suspect]
     Active Substance: METHOTREXATE SODIUM
     Dosage: 25 MG (DRUG NO LONGER ADMINISTERED)
  12. METHOTREXATE SODIUM [Suspect]
     Active Substance: METHOTREXATE SODIUM
     Dosage: 1 MG (DRUG NO LONGER ADMINISTERED)
  13. METHOTREXATE SODIUM [Suspect]
     Active Substance: METHOTREXATE SODIUM
     Dosage: 20 MG (DRUG NO LONGER ADMINISTERED)
  14. METHOTREXATE SODIUM [Suspect]
     Active Substance: METHOTREXATE SODIUM
     Dosage: 1 IN 1 DAY (DRUG NO LONGER ADMINISTERED)
  15. METHOTREXATE SODIUM [Suspect]
     Active Substance: METHOTREXATE SODIUM
     Dosage: UNK (DRUG NO LONGER ADMINISTERED)
  16. METHOTREXATE SODIUM [Suspect]
     Active Substance: METHOTREXATE SODIUM
     Dosage: UNK (DRUG NO LONGER ADMINISTERED)
  17. METHOTREXATE SODIUM [Suspect]
     Active Substance: METHOTREXATE SODIUM
     Dosage: 1 IN 1 WEEK (DRUG NO LONGER ADMINISTERED)
  18. METHOTREXATE SODIUM [Suspect]
     Active Substance: METHOTREXATE SODIUM
     Dosage: UNK (DRUG NO LONGER ADMINISTERED)
  19. METHOTREXATE SODIUM [Suspect]
     Active Substance: METHOTREXATE SODIUM
     Dosage: 1 IN 1 DAY (DRUG NO LONGER ADMINISTERED)
  20. METHOTREXATE SODIUM [Suspect]
     Active Substance: METHOTREXATE SODIUM
     Dosage: UNK (DRUG NO LONGER ADMINISTERED)
  21. METHOTREXATE SODIUM [Suspect]
     Active Substance: METHOTREXATE SODIUM
     Dosage: UNK (DRUG NO LONGER ADMINISTERED)
  22. METHOTREXATE SODIUM [Suspect]
     Active Substance: METHOTREXATE SODIUM
     Dosage: UNK (DRUG NO LONGER ADMINISTERED)
  23. METHOTREXATE SODIUM [Suspect]
     Active Substance: METHOTREXATE SODIUM
     Dosage: 1 IN 1 WEEK (DRUG NO LONGER ADMINISTERED)
  24. METHOTREXATE SODIUM [Suspect]
     Active Substance: METHOTREXATE SODIUM
     Dosage: 1 IN 1 WEEK (DRUG NO LONGER ADMINISTERED)
  25. METHOTREXATE SODIUM [Suspect]
     Active Substance: METHOTREXATE SODIUM
     Dosage: 1 IN 24 HOUR (DRUG NO LONGER ADMINISTERED)
  26. METHOTREXATE SODIUM [Suspect]
     Active Substance: METHOTREXATE SODIUM
     Dosage: 1 IN 1 DAY (DRUG NO LONGER ADMINISTERED)
  27. METHOTREXATE SODIUM [Suspect]
     Active Substance: METHOTREXATE SODIUM
     Dosage: UNK (DRUG NO LONGER ADMINISTERED)
  28. METHOTREXATE SODIUM [Suspect]
     Active Substance: METHOTREXATE SODIUM
     Dosage: UNK (DRUG NO LONGER ADMINISTERED)
  29. METHOTREXATE SODIUM [Suspect]
     Active Substance: METHOTREXATE SODIUM
     Dosage: 1 IN 24 HOUR (DRUG NO LONGER ADMINISTERED)
  30. METHOTREXATE SODIUM [Suspect]
     Active Substance: METHOTREXATE SODIUM
     Dosage: 1 IN 24 HOUR (DRUG NO LONGER ADMINISTERED)
  31. METHOTREXATE SODIUM [Suspect]
     Active Substance: METHOTREXATE SODIUM
     Dosage: 1 IN 1 WEEK (DRUG NO LONGER ADMINISTERED)
  32. METHOTREXATE SODIUM [Suspect]
     Active Substance: METHOTREXATE SODIUM
     Dosage: 1 IN 1 DAY (DRUG NO LONGER ADMINISTERED)
  33. METHOTREXATE SODIUM [Suspect]
     Active Substance: METHOTREXATE SODIUM
     Dosage: 1 IN 1 WEEK (DRUG NO LONGER ADMINISTERED)
  34. METHOTREXATE SODIUM [Suspect]
     Active Substance: METHOTREXATE SODIUM
     Dosage: UNK (DRUG NO LONGER ADMINISTERED)
  35. METHOTREXATE SODIUM [Suspect]
     Active Substance: METHOTREXATE SODIUM
     Dosage: UNK (DRUG NO LONGER ADMINISTERED)
  36. METHOTREXATE SODIUM [Suspect]
     Active Substance: METHOTREXATE SODIUM
     Dosage: UNK (DRUG NO LONGER ADMINISTERED)
  37. METHOTREXATE SODIUM [Suspect]
     Active Substance: METHOTREXATE SODIUM
     Dosage: 1 IN 1 WEEK (DRUG NO LONGER ADMINISTERED)
  38. METHOTREXATE SODIUM [Suspect]
     Active Substance: METHOTREXATE SODIUM
     Dosage: UNK (DRUG NO LONGER ADMINISTERED)
  39. METHOTREXATE SODIUM [Suspect]
     Active Substance: METHOTREXATE SODIUM
     Dosage: UNK (DRUG NO LONGER ADMINISTERED)
  40. ADALIMUMAB [Suspect]
     Active Substance: ADALIMUMAB
     Indication: Rheumatoid arthritis
     Dosage: 4 MG
  41. ADALIMUMAB [Suspect]
     Active Substance: ADALIMUMAB
     Dosage: 40 MG
  42. ADALIMUMAB [Suspect]
     Active Substance: ADALIMUMAB
     Dosage: UNK (DRUG NO LONGER ADMINISTERED)
  43. ADALIMUMAB [Suspect]
     Active Substance: ADALIMUMAB
     Dosage: UNK (DRUG NO LONGER ADMINISTERED)
  44. ADALIMUMAB [Suspect]
     Active Substance: ADALIMUMAB
     Dosage: UNK (DRUG NO LONGER ADMINISTERED)
  45. ADALIMUMAB [Suspect]
     Active Substance: ADALIMUMAB
     Dosage: 4 MG (DRUG NO LONGER ADMINISTERED)
  46. ADALIMUMAB [Suspect]
     Active Substance: ADALIMUMAB
     Dosage: 40 MG (DRUG NO LONGER ADMINISTERED)
  47. AZULFIDINE [Suspect]
     Active Substance: SULFASALAZINE
     Dosage: UNK
  48. AZULFIDINE [Suspect]
     Active Substance: SULFASALAZINE
     Dosage: UNK (DRUG NO LONGER ADMINISTERED)
  49. RITUXIMAB [Suspect]
     Active Substance: RITUXIMAB
     Indication: Rheumatoid arthritis
     Dosage: UNK
     Route: 058
  50. RITUXIMAB [Suspect]
     Active Substance: RITUXIMAB
     Dosage: UNK (DRUG NO LONGER ADMINISTERED)
  51. RITUXIMAB [Suspect]
     Active Substance: RITUXIMAB
     Dosage: UNK (DRUG NO LONGER ADMINISTERED)
  52. RITUXIMAB [Suspect]
     Active Substance: RITUXIMAB
     Dosage: UNK (DRUG NO LONGER ADMINISTERED)
  53. RITUXIMAB [Suspect]
     Active Substance: RITUXIMAB
     Dosage: UNK (DRUG NO LONGER ADMINISTERED)
  54. RITUXIMAB [Suspect]
     Active Substance: RITUXIMAB
     Dosage: UNK (DRUG NO LONGER ADMINISTERED)
  55. RITUXIMAB [Suspect]
     Active Substance: RITUXIMAB
     Dosage: UNK (DRUG NO LONGER ADMINISTERED)
  56. RITUXIMAB [Suspect]
     Active Substance: RITUXIMAB
     Dosage: UNK (DRUG NO LONGER ADMINISTERED)
  57. RITUXIMAB [Suspect]
     Active Substance: RITUXIMAB
     Dosage: UNK (DRUG NO LONGER ADMINISTERED)
  58. SULFASALAZINE [Suspect]
     Active Substance: SULFASALAZINE
     Dosage: UNK
  59. SULFASALAZINE [Suspect]
     Active Substance: SULFASALAZINE
     Dosage: UNK (DRUG NO LONGER ADMINISTERED)
  60. DESOGESTREL AND ETHINYL ESTRADIOL [Suspect]
     Active Substance: DESOGESTREL\ETHINYL ESTRADIOL
     Dosage: UNK (DRUG NO LONGER ADMINISTERED)
  61. DICLOFENAC SODIUM [Suspect]
     Active Substance: DICLOFENAC SODIUM
     Dosage: 50 MG
  62. DICLOFENAC SODIUM [Suspect]
     Active Substance: DICLOFENAC SODIUM
     Dosage: UNK (DRUG NO LONGER ADMINISTERED)
  63. DICLOFENAC SODIUM [Suspect]
     Active Substance: DICLOFENAC SODIUM
     Dosage: 50 MG (DRUG NO LONGER ADMINISTERED)
  64. DICLOFENAC SODIUM [Suspect]
     Active Substance: DICLOFENAC SODIUM
     Dosage: UNK (DRUG NO LONGER ADMINISTERED)
  65. FOLIC ACID [Suspect]
     Active Substance: FOLIC ACID
     Dosage: 0.5 MG
  66. FOLIC ACID [Suspect]
     Active Substance: FOLIC ACID
     Dosage: 500 MG
  67. FOLIC ACID [Suspect]
     Active Substance: FOLIC ACID
     Dosage: 1 MG
  68. FOLIC ACID [Suspect]
     Active Substance: FOLIC ACID
     Dosage: UNK
  69. FOLIC ACID [Suspect]
     Active Substance: FOLIC ACID
     Dosage: UNK (DRUG NO LONGER ADMINISTERED)
  70. FOLIC ACID [Suspect]
     Active Substance: FOLIC ACID
     Dosage: 0.5 MG (DRUG NO LONGER ADMINISTERED)
  71. FOLIC ACID [Suspect]
     Active Substance: FOLIC ACID
     Dosage: UNK (DRUG NO LONGER ADMINISTERED)
  72. FOLIC ACID [Suspect]
     Active Substance: FOLIC ACID
     Dosage: 500 MG (DRUG NO LONGER ADMINISTERED)
  73. FOLIC ACID [Suspect]
     Active Substance: FOLIC ACID
     Dosage: 1 MG (DRUG NO LONGER ADMINISTERED)
  74. FOLIC ACID [Suspect]
     Active Substance: FOLIC ACID
     Dosage: UNK (DRUG NO LONGER ADMINISTERED)
  75. FOLIC ACID [Suspect]
     Active Substance: FOLIC ACID
     Dosage: UNK (DRUG NO LONGER ADMINISTERED)
  76. FOLIC ACID [Suspect]
     Active Substance: FOLIC ACID
     Dosage: UNK (DRUG NO LONGER ADMINISTERED)
  77. FOLIC ACID [Suspect]
     Active Substance: FOLIC ACID
     Dosage: UNK (DRUG NO LONGER ADMINISTERED)
  78. FOLIC ACID [Suspect]
     Active Substance: FOLIC ACID
     Dosage: UNK (DRUG NO LONGER ADMINISTERED)
  79. FOLIC ACID [Suspect]
     Active Substance: FOLIC ACID
     Dosage: UNK (DRUG NO LONGER ADMINISTERED)
  80. FOLIC ACID [Suspect]
     Active Substance: FOLIC ACID
     Dosage: UNK (DRUG NO LONGER ADMINISTERED)
  81. FOLIC ACID [Suspect]
     Active Substance: FOLIC ACID
     Dosage: UNK (DRUG NO LONGER ADMINISTERED)
  82. FOLIC ACID [Suspect]
     Active Substance: FOLIC ACID
     Dosage: UNK (DRUG NO LONGER ADMINISTERED)
  83. MYCOPHENOLATE MOFETIL [Suspect]
     Active Substance: MYCOPHENOLATE MOFETIL
     Dosage: UNK
     Route: 058
  84. MYCOPHENOLATE MOFETIL [Suspect]
     Active Substance: MYCOPHENOLATE MOFETIL
     Dosage: UNK (DRUG NO LONGER ADMINISTERED)
  85. OXYCODONE HYDROCHLORIDE [Suspect]
     Active Substance: OXYCODONE HYDROCHLORIDE
     Dosage: UNK
  86. OXYCODONE HYDROCHLORIDE [Suspect]
     Active Substance: OXYCODONE HYDROCHLORIDE
     Dosage: UNK (DRUG NO LONGER ADMINISTERED)
  87. OXYCODONE HYDROCHLORIDE [Suspect]
     Active Substance: OXYCODONE HYDROCHLORIDE
     Dosage: UNK (DRUG NO LONGER ADMINISTERED)
  88. SULFAMETHOXAZOLE [Suspect]
     Active Substance: SULFAMETHOXAZOLE
     Dosage: UNK
  89. SULFAMETHOXAZOLE [Suspect]
     Active Substance: SULFAMETHOXAZOLE
     Dosage: UNK (DRUG NO LONGER ADMINISTERED)
  90. ACETAMINOPHEN\CODEINE PHOSPHATE [Suspect]
     Active Substance: ACETAMINOPHEN\CODEINE PHOSPHATE
     Dosage: UNK
  91. ACETAMINOPHEN\CODEINE PHOSPHATE [Suspect]
     Active Substance: ACETAMINOPHEN\CODEINE PHOSPHATE
     Dosage: UNK (DRUG NO LONGER ADMINISTERED)
  92. COSENTYX [Suspect]
     Active Substance: SECUKINUMAB
     Indication: Psoriatic arthropathy
     Dosage: UNK
  93. COSENTYX [Suspect]
     Active Substance: SECUKINUMAB
     Dosage: UNK (DRUG NO LONGER ADMINISTERED)
  94. APREPITANT [Suspect]
     Active Substance: APREPITANT
     Dosage: UNK
  95. APREPITANT [Suspect]
     Active Substance: APREPITANT
     Dosage: UNK (DRUG NO LONGER ADMINISTERED)
  96. CALCIUM CARBONATE\CHOLECALCIFEROL [Suspect]
     Active Substance: CALCIUM CARBONATE\CHOLECALCIFEROL
     Dosage: UNK
  97. CALCIUM CARBONATE\CHOLECALCIFEROL [Suspect]
     Active Substance: CALCIUM CARBONATE\CHOLECALCIFEROL
     Dosage: UNK (DRUG NO LONGER ADMINISTERED)
  98. CLIOQUINOL\HYDROCORTISONE [Suspect]
     Active Substance: CLIOQUINOL\HYDROCORTISONE
     Dosage: UNK
  99. CLIOQUINOL\HYDROCORTISONE [Suspect]
     Active Substance: CLIOQUINOL\HYDROCORTISONE
     Dosage: UNK (DRUG NO LONGER ADMINISTERED)
  100. ERELZI [Suspect]
     Active Substance: ETANERCEPT-SZZS
     Indication: Rheumatoid arthritis
     Dosage: UNK, WEEKLY
     Route: 058
  101. ERELZI [Suspect]
     Active Substance: ETANERCEPT-SZZS
     Dosage: UNK (DRUG NO LONGER ADMINISTERED)
  102. ERELZI [Suspect]
     Active Substance: ETANERCEPT-SZZS
     Dosage: 1 IN 1 WEEK (DRUG NO LONGER ADMINISTERED)
  103. ERELZI [Suspect]
     Active Substance: ETANERCEPT-SZZS
     Dosage: 1 IN 1 WEEK (DRUG NO LONGER ADMINISTERED)
  104. ERELZI [Suspect]
     Active Substance: ETANERCEPT-SZZS
     Dosage: 1 IN 1 WEEK (DRUG NO LONGER ADMINISTERED)
  105. SULFATHIAZOLE [Suspect]
     Active Substance: SULFATHIAZOLE
     Dosage: UNK
     Route: 058
  106. SULFATHIAZOLE [Suspect]
     Active Substance: SULFATHIAZOLE
     Dosage: UNK (DRUG NO LONGER ADMINISTERED)
  107. VITAMIN C [Suspect]
     Active Substance: ASCORBIC ACID
     Dosage: UNK
  108. VITAMIN C [Suspect]
     Active Substance: ASCORBIC ACID
     Dosage: UNK (DRUG NO LONGER ADMINISTERED)
  109. HYRIMOZ [Suspect]
     Active Substance: ADALIMUMAB-ADAZ
     Indication: Rheumatoid arthritis
     Dosage: UNK
  110. HYRIMOZ [Suspect]
     Active Substance: ADALIMUMAB-ADAZ
     Dosage: UNK (DRUG NO LONGER ADMINISTERED)
  111. DESOGESTREL AND ETHINYL ESTRADIOL [Concomitant]
     Active Substance: DESOGESTREL\ETHINYL ESTRADIOL
     Dosage: UNK
  112. LISINOPRIL [Concomitant]
     Active Substance: LISINOPRIL
     Dosage: UNK
  113. ALBUTEROL SULFATE [Concomitant]
     Active Substance: ALBUTEROL SULFATE
     Dosage: UNK
  114. ZOPICLONE [Concomitant]
     Active Substance: ZOPICLONE
     Dosage: UNK
  115. ACETAMINOPHEN\CAFFEINE\CODEINE PHOSPHATE [Concomitant]
     Active Substance: ACETAMINOPHEN\CAFFEINE\CODEINE PHOSPHATE
     Dosage: UNK
  116. TYLENOL [Concomitant]
     Active Substance: ACETAMINOPHEN
     Dosage: UNK

REACTIONS (29)
  - Maternal exposure timing unspecified [Fatal]
  - Exposure during pregnancy [Fatal]
  - Joint stiffness [Fatal]
  - Ear pain [Fatal]
  - Crohn^s disease [Fatal]
  - Red blood cell sedimentation rate increased [Fatal]
  - Hepatic cirrhosis [Fatal]
  - Exostosis [Fatal]
  - Drug-induced liver injury [Fatal]
  - Osteoporosis [Fatal]
  - Bronchitis [Fatal]
  - Tachycardia [Fatal]
  - Upper respiratory tract infection [Fatal]
  - Visual impairment [Fatal]
  - Ear infection [Fatal]
  - Therapy non-responder [Fatal]
  - Ulcer haemorrhage [Fatal]
  - Lupus vulgaris [Fatal]
  - Lupus-like syndrome [Fatal]
  - Frequent bowel movements [Fatal]
  - Laryngitis [Fatal]
  - C-reactive protein abnormal [Fatal]
  - Bone erosion [Fatal]
  - Feeling hot [Fatal]
  - Bursitis [Fatal]
  - Retinitis [Fatal]
  - Prescribed overdose [Fatal]
  - Inappropriate schedule of product administration [Fatal]
  - Off label use [Fatal]
